FAERS Safety Report 10208876 (Version 1)
Quarter: 2014Q2

REPORT INFORMATION
  Report Type: Report from Study
  Country: MX (occurrence: MX)
  Receive Date: 20140530
  Receipt Date: 20140530
  Transmission Date: 20141212
  Serious: Yes (Other)
  Sender: FDA-Public Use
  Company Number: PHHY2014MX066498

PATIENT
  Age: 67 Year
  Sex: Female

DRUGS (4)
  1. CO-DIOVAN [Suspect]
     Indication: HYPERTENSION
     Dosage: 1 TABLET (160/25 MG), DAILY
     Route: 048
  2. CO-DIOVAN [Suspect]
     Dosage: 1.5  TABLET (160/25 MG), AS NEEDED
     Route: 048
  3. SYMBICORT [Concomitant]
     Indication: ASTHMA
     Dosage: 1 UKN, AT NIGHT
     Route: 055
  4. COMBIVENT [Concomitant]
     Indication: ASTHMA
     Dosage: 1 UKN, DAILY
     Dates: start: 1999

REACTIONS (12)
  - Road traffic accident [Not Recovered/Not Resolved]
  - Osteoporosis [Not Recovered/Not Resolved]
  - Spinal deformity [Not Recovered/Not Resolved]
  - Memory impairment [Not Recovered/Not Resolved]
  - Pain [Not Recovered/Not Resolved]
  - Nervousness [Unknown]
  - Hypoaesthesia [Not Recovered/Not Resolved]
  - Headache [Not Recovered/Not Resolved]
  - Tinnitus [Not Recovered/Not Resolved]
  - Blood pressure increased [Unknown]
  - Drug prescribing error [Unknown]
  - Wrong technique in drug usage process [Not Recovered/Not Resolved]
